FAERS Safety Report 10144405 (Version 1)
Quarter: 2014Q2

REPORT INFORMATION
  Report Type: Spontaneous
  Country: FR (occurrence: FR)
  Receive Date: 20140430
  Receipt Date: 20140430
  Transmission Date: 20141212
  Serious: Yes (Other)
  Sender: FDA-Public Use
  Company Number: FR-PFIZER INC-2014117191

PATIENT
  Age: 48 Year
  Sex: Female

DRUGS (1)
  1. EFFEXOR LP [Suspect]
     Dosage: 75 MG, UNK
     Dates: start: 201403

REACTIONS (4)
  - Muscle contracture [Unknown]
  - Periodontitis [Unknown]
  - Yawning [Unknown]
  - Hyperhidrosis [Unknown]
